FAERS Safety Report 9219225 (Version 2)
Quarter: 2013Q3

REPORT INFORMATION
  Report Type: Spontaneous
  Country: JP (occurrence: JP)
  Receive Date: 20130409
  Receipt Date: 20130715
  Transmission Date: 20140515
  Serious: Yes (Other)
  Sender: FDA-Public Use
  Company Number: JP-009507513-1304JPN002925

PATIENT
  Age: 60 Year
  Sex: Female

DRUGS (2)
  1. TEMODAL [Suspect]
     Indication: GLIOBLASTOMA
     Dosage: DAILY DOSE UNKNOWN
  2. ADRENAL [Concomitant]
     Indication: GLIOBLASTOMA

REACTIONS (5)
  - Cytomegalovirus infection [Recovered/Resolved]
  - Pneumocystis jirovecii infection [Recovered/Resolved]
  - Fungal infection [Unknown]
  - Influenza [Unknown]
  - Lymphocyte count decreased [Unknown]
